FAERS Safety Report 6535387-7 (Version None)
Quarter: 2009Q4

REPORT INFORMATION
  Report Type: 
  Country: None (occurrence: None)
  Receive Date: 20091228
  Receipt Date: 20090821
  Transmission Date: 20100525
  Serious: Yes (Life-Threatening)
  Sender: FDA-Public Use
  Company Number: US-003329

PATIENT
  Age: 56 Year
  Sex: Female

DRUGS (3)
  1. MULTIHANCE [Suspect]
     Indication: NUCLEAR MAGNETIC RESONANCE IMAGING
     Dosage: 12ML ONCE INTRAVENOUS
     Route: 042
     Dates: start: 20090821, end: 20090821
  2. MULTIHANCE [Suspect]
     Indication: STAPHYLOCOCCAL INFECTION
     Dosage: 12ML ONCE INTRAVENOUS
     Route: 042
     Dates: start: 20090821, end: 20090821
  3. MULTIHANCE [Suspect]

REACTIONS (2)
  - ANAPHYLACTOID REACTION [None]
  - PULMONARY EMBOLISM [None]
